FAERS Safety Report 4395263-5 (Version None)
Quarter: 2004Q3

REPORT INFORMATION
  Report Type: 
  Country: None (occurrence: None)
  Receive Date: 20040706
  Receipt Date: 20040622
  Transmission Date: 20050211
  Serious: No
  Sender: FDA-Public Use
  Company Number: 2004220932NL

PATIENT
  Age: 67 Year
  Sex: Male

DRUGS (1)
  1. FARMORUBICINE RTU (EPIRUBICIN HYDROCHLORIDE) SOLUTION, STERILE [Suspect]
     Indication: BLADDER CANCER
     Dosage: 80 MG, SINGLE, INTRAVESICULAR

REACTIONS (10)
  - ABDOMINAL PAIN LOWER [None]
  - CYSTOSCOPY ABNORMAL [None]
  - DEVICE FAILURE [None]
  - EXTRAVASATION OF URINE [None]
  - PERINEAL PAIN [None]
  - POLLAKIURIA [None]
  - POST PROCEDURAL COMPLICATION [None]
  - RED BLOOD CELL SEDIMENTATION RATE INCREASED [None]
  - RED BLOOD CELLS URINE POSITIVE [None]
  - WHITE BLOOD CELLS URINE POSITIVE [None]
